FAERS Safety Report 8709431 (Version 2)
Quarter: 2012Q4

REPORT INFORMATION
  Report Type: 
  Country: US (occurrence: US)
  Receive Date: 20120806
  Receipt Date: 20120828
  Transmission Date: 20130627
  Serious: Yes (Life-Threatening)
  Sender: FDA-Public Use
  Company Number: US-B.I. PHARMACEUTICALS,INC./RIDGEFIELD-2012-BP-17533BP

PATIENT
  Age: 91 None
  Sex: Female
  Weight: 61.23 kg

DRUGS (10)
  1. PRADAXA [Suspect]
     Indication: CEREBROVASCULAR ACCIDENT PROPHYLAXIS
     Dosage: 300 mg
     Route: 048
     Dates: start: 201206
  2. PRADAXA [Suspect]
     Indication: ATRIAL FIBRILLATION
  3. MECLIZINE [Concomitant]
  4. METFORMIN [Concomitant]
  5. CARVEDILOL [Concomitant]
  6. LOVAZA [Concomitant]
  7. DIGOXIN [Concomitant]
  8. IMDUR [Concomitant]
  9. DIOVAN [Concomitant]
  10. SIMVASTATIN [Concomitant]

REACTIONS (3)
  - Subdural haematoma [Recovered/Resolved with Sequelae]
  - Coma [Recovered/Resolved with Sequelae]
  - Haemorrhage intracranial [Not Recovered/Not Resolved]
